FAERS Safety Report 8397487-9 (Version None)
Quarter: 2012Q2

REPORT INFORMATION
  Report Type: 
  Country: None (occurrence: None)
  Receive Date: 20120529
  Receipt Date: 20120529
  Transmission Date: 20120825
  Serious: No
  Sender: FDA-Public Use
  Company Number: None

PATIENT
  Sex: Male

DRUGS (1)
  1. TOPIRAMATE [Suspect]
     Indication: ESSENTIAL TREMOR
     Dosage: 25MG 1 TABLET @ BEDTIME PO
     Route: 048
     Dates: start: 20120329, end: 20120413

REACTIONS (5)
  - DRUG HYPERSENSITIVITY [None]
  - GINGIVAL PAIN [None]
  - TOOTHACHE [None]
  - GINGIVAL ERYTHEMA [None]
  - CHEILITIS [None]
